FAERS Safety Report 9706892 (Version 5)
Quarter: 2016Q4

REPORT INFORMATION
  Report Type: Spontaneous
  Country: US (occurrence: US)
  Receive Date: 20131125
  Receipt Date: 20161109
  Transmission Date: 20170207
  Serious: Yes (Hospitalization, Disabling, Other)
  Sender: FDA-Public Use
  Company Number: US-009507513-1311USA007339

PATIENT
  Sex: Female

DRUGS (2)
  1. FOSAMAX PLUS D [Suspect]
     Active Substance: ALENDRONATE SODIUM\CHOLECALCIFEROL
     Indication: OSTEOPOROSIS
     Dosage: 75 MG, QW
     Route: 048
     Dates: start: 20061209, end: 2010
  2. FOSAMAX [Suspect]
     Active Substance: ALENDRONATE SODIUM
     Indication: OSTEOPOROSIS
     Dosage: 75 MG, UNKNOWN
     Route: 048
     Dates: start: 2000, end: 20061209

REACTIONS (23)
  - Back injury [Unknown]
  - Gastrooesophageal reflux disease [Unknown]
  - Osteoarthritis [Unknown]
  - Skin abrasion [Unknown]
  - Joint injury [Unknown]
  - Fungal infection [Unknown]
  - Osteoporosis [Unknown]
  - Macular degeneration [Unknown]
  - Back pain [Unknown]
  - Fracture pain [Unknown]
  - Limb injury [Unknown]
  - Calcium deficiency [Unknown]
  - Femur fracture [Recovering/Resolving]
  - Incorrect dose administered [Unknown]
  - Vitamin D deficiency [Unknown]
  - Blood cholesterol increased [Unknown]
  - Fracture [Unknown]
  - Blood pressure increased [Unknown]
  - Exostosis [Unknown]
  - Fall [Unknown]
  - Cataract [Unknown]
  - Spinal flattening [Unknown]
  - Dizziness [Unknown]

NARRATIVE: CASE EVENT DATE: 2009
